FAERS Safety Report 9031884 (Version 1)
Quarter: 2013Q1

REPORT INFORMATION
  Report Type: Spontaneous
  Country: US (occurrence: US)
  Receive Date: 20130125
  Receipt Date: 20130125
  Transmission Date: 20140127
  Serious: Yes (Hospitalization)
  Sender: FDA-Public Use
  Company Number: US-SANOFI-AVENTIS-2013SA005681

PATIENT
  Age: 66 Year
  Sex: Male

DRUGS (3)
  1. LANTUS [Suspect]
     Indication: TYPE 2 DIABETES MELLITUS
     Dosage: AROUND 30 UNITS. DOSE:28 UNIT(S)
     Route: 058
     Dates: start: 2010
  2. NPH INSULIN [Concomitant]
  3. NOVOLOG [Concomitant]
     Dosage: ON A SLIDING SCALE DURING THE DAY.

REACTIONS (4)
  - Road traffic accident [Recovered/Resolved with Sequelae]
  - Amnesia [Not Recovered/Not Resolved]
  - Deafness [Not Recovered/Not Resolved]
  - Somnolence [Not Recovered/Not Resolved]
